FAERS Safety Report 5809366-9 (Version None)
Quarter: 2008Q3

REPORT INFORMATION
  Report Type: 
  Country: None (occurrence: None)
  Receive Date: 20080714
  Receipt Date: 20080703
  Transmission Date: 20090109
  Serious: Yes (Death)
  Sender: FDA-Public Use
  Company Number: PHHY2008ES12858

PATIENT
  Age: 79 Year
  Sex: Male

DRUGS (6)
  1. STALEVO 100 [Suspect]
     Dosage: 50/12.5/200 MG
     Route: 048
     Dates: start: 20070510
  2. EXELON [Interacting]
     Dosage: 3 MG, BID
     Route: 048
     Dates: start: 20050728
  3. MADOPAR [Interacting]
     Dosage: UNK
     Route: 048
     Dates: start: 20050728
  4. MIRAPEXIN [Interacting]
     Dosage: 0.54 MG, TID
     Dates: start: 20070622
  5. MIRAPEXIN [Interacting]
     Dosage: 1.05 MG, TID
  6. SINEMET [Interacting]
     Dosage: UNK
     Route: 048
     Dates: start: 20060425

REACTIONS (2)
  - DRUG INTERACTION [None]
  - GASTROINTESTINAL HAEMORRHAGE [None]
